FAERS Safety Report 7148421-0 (Version None)
Quarter: 2010Q4

REPORT INFORMATION
  Report Type: 
  Country: None (occurrence: None)
  Receive Date: 20101209
  Receipt Date: 20101116
  Transmission Date: 20110411
  Serious: No
  Sender: FDA-Public Use
  Company Number: B0613451A

PATIENT
  Sex: Female
  Weight: 53 kg

DRUGS (5)
  1. RELENZA [Suspect]
     Indication: INFLUENZA
     Dosage: 20MG PER DAY
     Route: 055
     Dates: start: 20091128, end: 20091202
  2. DASEN [Concomitant]
     Dosage: 30MG PER DAY
     Route: 048
     Dates: start: 20091128, end: 20091202
  3. MEDICON [Concomitant]
     Indication: PRODUCTIVE COUGH
     Dosage: 45MG PER DAY
     Route: 048
     Dates: start: 20091128, end: 20091202
  4. CLEANAL [Concomitant]
     Indication: PRODUCTIVE COUGH
     Dosage: 600MG PER DAY
     Route: 048
     Dates: start: 20091128, end: 20091202
  5. CALONAL [Concomitant]
     Indication: ANTIPYRESIS
     Dosage: 600MG PER DAY
     Route: 048
     Dates: start: 20091128, end: 20091202

REACTIONS (1)
  - DRUG EXPOSURE DURING PREGNANCY [None]
